FAERS Safety Report 6648459-3 (Version None)
Quarter: 2010Q1

REPORT INFORMATION
  Report Type: 
  Country: None (occurrence: None)
  Receive Date: 20100319
  Receipt Date: 20100309
  Transmission Date: 20100710
  Serious: Yes (Hospitalization)
  Sender: FDA-Public Use
  Company Number: 2010EN000065

PATIENT
  Age: 80 Year
  Sex: Female
  Weight: 56.6 kg

DRUGS (3)
  1. ONCASPAR [Suspect]
     Indication: DIFFUSE LARGE B-CELL LYMPHOMA
     Dosage: 4000 IU; QOW;IV
     Route: 042
     Dates: start: 20100202, end: 20100216
  2. DOXIL [Suspect]
     Indication: DIFFUSE LARGE B-CELL LYMPHOMA
     Dosage: 32 MG; QOW; IV
     Route: 042
     Dates: start: 20100202, end: 20100216
  3. DECADRON [Concomitant]

REACTIONS (8)
  - ABDOMINAL PAIN UPPER [None]
  - CHOLECYSTITIS [None]
  - CHOLELITHIASIS [None]
  - DRUG TOXICITY [None]
  - FALL [None]
  - FATIGUE [None]
  - JAUNDICE [None]
  - NEUTROPENIA [None]
